FAERS Safety Report 15400922 (Version 10)
Quarter: 2018Q4

REPORT INFORMATION
  Report Type: Report from Study
  Country: CO (occurrence: CO)
  Receive Date: 20180919
  Receipt Date: 20181126
  Transmission Date: 20190204
  Serious: Yes (Death, Hospitalization)
  Sender: FDA-Public Use
  Company Number: CO-JNJFOC-20180915987

PATIENT
  Age: 72 Year
  Sex: Male
  Weight: 51 kg

DRUGS (7)
  1. DARZALEX [Suspect]
     Active Substance: DARATUMUMAB
     Indication: PLASMA CELL MYELOMA
     Route: 042
     Dates: start: 20180813
  2. DARZALEX [Suspect]
     Active Substance: DARATUMUMAB
     Indication: PLASMA CELL MYELOMA
     Route: 042
     Dates: start: 20180827
  3. HYDROXYZINE [Concomitant]
     Active Substance: HYDROXYZINE HYDROCHLORIDE
     Indication: PREMEDICATION
     Route: 048
     Dates: start: 20180827
  4. LENALIDOMIDE [Concomitant]
     Active Substance: LENALIDOMIDE
     Indication: PLASMA CELL MYELOMA
     Route: 048
     Dates: start: 20180827
  5. ACETAMINOPHEN. [Concomitant]
     Active Substance: ACETAMINOPHEN
     Indication: PREMEDICATION
     Route: 048
     Dates: start: 20180827
  6. DEXAMETHASONE. [Concomitant]
     Active Substance: DEXAMETHASONE
     Indication: PREMEDICATION
     Route: 042
     Dates: start: 20180827
  7. DEXAMETHASONE. [Concomitant]
     Active Substance: DEXAMETHASONE
     Indication: PLASMA CELL MYELOMA
     Route: 042
     Dates: start: 20180827

REACTIONS (23)
  - Diarrhoea [Recovering/Resolving]
  - Cough [Not Recovered/Not Resolved]
  - Pneumonia [Not Recovered/Not Resolved]
  - Neutropenia [Recovering/Resolving]
  - Haematochezia [Recovering/Resolving]
  - Plasmacytoma [Recovering/Resolving]
  - Thrombocytopenia [Recovering/Resolving]
  - Dyspnoea [Recovering/Resolving]
  - Somnolence [Recovering/Resolving]
  - Chest pain [Recovering/Resolving]
  - Respiratory failure [Fatal]
  - Respiratory distress [Not Recovered/Not Resolved]
  - Influenza [Recovering/Resolving]
  - Condition aggravated [Not Recovered/Not Resolved]
  - Haemoglobin decreased [Recovering/Resolving]
  - Musculoskeletal chest pain [Recovering/Resolving]
  - Pleurodesis [Recovering/Resolving]
  - Hypokalaemia [Recovering/Resolving]
  - Pyrexia [Recovering/Resolving]
  - Anaemia [Recovering/Resolving]
  - Diarrhoea [Recovering/Resolving]
  - Infusion related reaction [Not Recovered/Not Resolved]
  - Throat irritation [Recovered/Resolved]

NARRATIVE: CASE EVENT DATE: 20180827
